FAERS Safety Report 6385264-X (Version None)
Quarter: 2009Q4

REPORT INFORMATION
  Report Type: 
  Country: None (occurrence: None)
  Receive Date: 20091002
  Receipt Date: 20081208
  Transmission Date: 20100525
  Serious: No
  Sender: FDA-Public Use
  Company Number: US-ASTRAZENECA-2008UW15921

PATIENT
  Age: 68 Year
  Sex: Female
  Weight: 50.8 kg

DRUGS (1)
  1. ARIMIDEX [Suspect]
     Indication: BREAST CANCER
     Route: 048
     Dates: start: 20080401

REACTIONS (11)
  - ARTHRITIS [None]
  - BACK PAIN [None]
  - BLOOD PRESSURE INCREASED [None]
  - COUGH [None]
  - DYSPHAGIA [None]
  - HOT FLUSH [None]
  - INSOMNIA [None]
  - JOINT STIFFNESS [None]
  - LOSS OF LIBIDO [None]
  - NASOPHARYNGITIS [None]
  - VULVOVAGINAL DRYNESS [None]
